FAERS Safety Report 9958628 (Version 1)
Quarter: 2014Q1

REPORT INFORMATION
  Report Type: Spontaneous
  Country: US (occurrence: US)
  Receive Date: 20140305
  Receipt Date: 20140305
  Transmission Date: 20141002
  Serious: No
  Sender: FDA-Public Use
  Company Number: US-BAYER-2014-034061

PATIENT
  Age: 56 Year
  Sex: Female

DRUGS (4)
  1. BETASERON [Suspect]
     Dosage: 0.25 MG, QOD
     Route: 058
  2. FISH OIL [Concomitant]
  3. VITAMIN D [Concomitant]
  4. TYLENOL [PARACETAMOL] [Concomitant]

REACTIONS (3)
  - Influenza [Unknown]
  - Vomiting [Unknown]
  - Balance disorder [Unknown]
